FAERS Safety Report 17921151 (Version 4)
Quarter: 2022Q2

REPORT INFORMATION
  Report Type: Report from Study
  Country: None (occurrence: NZ)
  Receive Date: 20200622
  Receipt Date: 20220415
  Transmission Date: 20220721
  Serious: Yes (Hospitalization, Other)
  Sender: FDA-Public Use
  Company Number: NZ-AKCEA THERAPEUTICS-2020IS001252

PATIENT
  Age: 56 Year
  Sex: Male
  Weight: 75.182 kg

DRUGS (18)
  1. TEGSEDI [Suspect]
     Active Substance: INOTERSEN SODIUM
     Indication: Hereditary neuropathic amyloidosis
     Route: 058
     Dates: start: 2019
  2. TEGSEDI [Suspect]
     Active Substance: INOTERSEN SODIUM
     Indication: Cardiac amyloidosis
  3. DEVICE [Suspect]
     Active Substance: DEVICE
  4. WARFARIN [Concomitant]
     Active Substance: WARFARIN
     Route: 048
     Dates: start: 20190513, end: 20200614
  5. ASPIRIN [Concomitant]
     Active Substance: ASPIRIN
     Route: 048
  6. TACROLIMUS [Concomitant]
     Active Substance: TACROLIMUS
     Route: 048
     Dates: start: 2016
  7. FUROSEMIDE [Concomitant]
     Active Substance: FUROSEMIDE
     Route: 048
     Dates: end: 20200614
  8. DROXIDOPA [Concomitant]
     Active Substance: DROXIDOPA
     Route: 048
     Dates: start: 2018
  9. HYDROCORTISONE [Concomitant]
     Active Substance: HYDROCORTISONE
     Route: 048
  10. GABAPENTIN [Concomitant]
     Active Substance: GABAPENTIN
     Route: 048
  11. PANTOPRAZOLE [Concomitant]
     Active Substance: PANTOPRAZOLE
     Route: 048
  12. DOMPERIDONE [Concomitant]
     Active Substance: DOMPERIDONE
     Route: 048
  13. ZOPICLONE [Concomitant]
     Active Substance: ZOPICLONE
     Route: 048
  14. B-PLEX /00182701/ [Concomitant]
     Route: 048
  15. VITAMINS [Concomitant]
     Active Substance: VITAMINS
     Route: 048
  16. PYRIDOXINE [Concomitant]
     Active Substance: PYRIDOXINE
     Route: 048
  17. VITAMIN B12 [Concomitant]
     Active Substance: CYANOCOBALAMIN
     Route: 048
  18. VITAMIN B1 [Concomitant]
     Active Substance: THIAMINE HYDROCHLORIDE
     Route: 048

REACTIONS (4)
  - Fall [Recovering/Resolving]
  - Resuscitation [Recovering/Resolving]
  - Acute pulmonary oedema [Recovering/Resolving]
  - Hypotension [Recovering/Resolving]

NARRATIVE: CASE EVENT DATE: 20200611
